FAERS Safety Report 8437797-X (Version None)
Quarter: 2012Q2

REPORT INFORMATION
  Report Type: 
  Country: None (occurrence: None)
  Receive Date: 20120614
  Receipt Date: 20120514
  Transmission Date: 20120825
  Serious: No
  Sender: FDA-Public Use
  Company Number: US-AMGEN-USASP2012030385

PATIENT
  Age: 58 Year
  Sex: Female

DRUGS (10)
  1. FISH OIL [Concomitant]
     Dosage: UNK
  2. MULTI-VITAMIN [Concomitant]
     Dosage: UNK
  3. PROTONIX [Concomitant]
     Dosage: UNK
  4. PROLIA [Suspect]
     Indication: OSTEOPOROSIS
     Dosage: 60 MG, Q6MO
     Dates: start: 20110101
  5. MAGNESIUM [Concomitant]
     Dosage: UNK
  6. VITAMIN D [Concomitant]
     Dosage: UNK
  7. VITAMIN B-12 [Concomitant]
     Dosage: UNK
  8. ANTIHISTAMINES [Concomitant]
     Dosage: UNK
  9. HORMONES [Concomitant]
     Dosage: UNK
  10. CALCIUM [Concomitant]
     Dosage: UNK

REACTIONS (5)
  - MYALGIA [None]
  - ARTHRALGIA [None]
  - INSOMNIA [None]
  - CARTILAGE INJURY [None]
  - ACTIVITIES OF DAILY LIVING IMPAIRED [None]
